FAERS Safety Report 17582026 (Version 2)
Quarter: 2020Q3

REPORT INFORMATION
  Report Type: Spontaneous
  Country: JP (occurrence: JP)
  Receive Date: 20200325
  Receipt Date: 20200713
  Transmission Date: 20201102
  Serious: Yes (Other)
  Sender: FDA-Public Use
  Company Number: JP-BAUSCH-BL-2020-008006

PATIENT
  Age: 67 Year
  Sex: Male
  Weight: 58 kg

DRUGS (63)
  1. ZALTRAP [Suspect]
     Active Substance: ZIV-AFLIBERCEPT
     Indication: RECTAL CANCER
     Dosage: 1X: ONE TIME
     Route: 041
     Dates: start: 20180502, end: 20180502
  2. ZALTRAP [Suspect]
     Active Substance: ZIV-AFLIBERCEPT
     Dosage: 1X: ONE TIME
     Route: 041
     Dates: start: 20180905, end: 20180905
  3. ZALTRAP [Suspect]
     Active Substance: ZIV-AFLIBERCEPT
     Dosage: 1X: ONE TIME
     Route: 041
     Dates: start: 20190320, end: 20190320
  4. CALCIUM FOLINATE [Suspect]
     Active Substance: LEUCOVORIN CALCIUM
     Dosage: 1X: ONE TIME
     Route: 065
     Dates: start: 20181010, end: 20181010
  5. FLUOROURACIL. [Suspect]
     Active Substance: FLUOROURACIL
     Dosage: 1X: ONE TIME
     Route: 040
     Dates: start: 20180905, end: 20180905
  6. FLUOROURACIL. [Suspect]
     Active Substance: FLUOROURACIL
     Dosage: 1X: ONE TIME
     Route: 040
     Dates: start: 20181212, end: 20181212
  7. FLUOROURACIL. [Suspect]
     Active Substance: FLUOROURACIL
     Dosage: 1X: ONE TIME
     Route: 040
     Dates: start: 20190213, end: 20190213
  8. ATROPINE SULFATE. [Suspect]
     Active Substance: ATROPINE SULFATE
     Indication: PREMEDICATION
     Route: 065
     Dates: start: 2018
  9. ZALTRAP [Suspect]
     Active Substance: ZIV-AFLIBERCEPT
     Dosage: 1X: ONE TIME
     Route: 041
     Dates: start: 20190213, end: 20190213
  10. CALCIUM FOLINATE [Suspect]
     Active Substance: LEUCOVORIN CALCIUM
     Dosage: 1X: ONE TIME
     Route: 065
     Dates: start: 20181107, end: 20181107
  11. CALCIUM FOLINATE [Suspect]
     Active Substance: LEUCOVORIN CALCIUM
     Dosage: 1X: ONE TIME
     Route: 065
     Dates: start: 20190213, end: 20190213
  12. CALCIUM FOLINATE [Suspect]
     Active Substance: LEUCOVORIN CALCIUM
     Dosage: 1X: ONE TIME
     Route: 065
     Dates: start: 20190403, end: 20190403
  13. IRINOTECAN [Suspect]
     Active Substance: IRINOTECAN
     Dosage: 1X: ONE TIME
     Route: 065
     Dates: start: 20190213, end: 20190213
  14. FLUOROURACIL. [Suspect]
     Active Substance: FLUOROURACIL
     Dosage: 1X: ONE TIME
     Route: 041
     Dates: start: 20181212, end: 20181212
  15. FLUOROURACIL. [Suspect]
     Active Substance: FLUOROURACIL
     Dosage: 1X: ONE TIME
     Route: 040
     Dates: start: 20190320, end: 20190320
  16. FLUOROURACIL. [Suspect]
     Active Substance: FLUOROURACIL
     Dosage: 1X: ONE TIME
     Route: 040
     Dates: start: 20190403, end: 20190403
  17. IRINOTECAN [Suspect]
     Active Substance: IRINOTECAN
     Dosage: 1X: ONE TIME
     Route: 065
     Dates: start: 20181010, end: 20181010
  18. IRINOTECAN [Suspect]
     Active Substance: IRINOTECAN
     Dosage: 1X: ONE TIME
     Route: 065
     Dates: start: 20191212, end: 20191212
  19. FLUOROURACIL. [Suspect]
     Active Substance: FLUOROURACIL
     Route: 041
     Dates: start: 20180502, end: 20180523
  20. FLUOROURACIL. [Suspect]
     Active Substance: FLUOROURACIL
     Dosage: 1X: ONE TIME
     Route: 041
     Dates: start: 20181117, end: 20181117
  21. FLUOROURACIL. [Suspect]
     Active Substance: FLUOROURACIL
     Dosage: 1X: ONE TIME
     Route: 041
     Dates: start: 20190508, end: 20190508
  22. ZALTRAP [Suspect]
     Active Substance: ZIV-AFLIBERCEPT
     Dosage: 1X: ONE TIME
     Route: 041
     Dates: start: 20181010, end: 20181010
  23. ZALTRAP [Suspect]
     Active Substance: ZIV-AFLIBERCEPT
     Dosage: 1X: ONE TIME
     Route: 041
     Dates: start: 20190123, end: 20190123
  24. CALCIUM FOLINATE [Suspect]
     Active Substance: LEUCOVORIN CALCIUM
     Indication: RECTAL CANCER
     Route: 065
     Dates: start: 20180502, end: 20180523
  25. CALCIUM FOLINATE [Suspect]
     Active Substance: LEUCOVORIN CALCIUM
     Dosage: 1X: ONE TIME
     Route: 065
     Dates: start: 20190508, end: 20190508
  26. IRINOTECAN [Suspect]
     Active Substance: IRINOTECAN
     Dosage: 1X: ONE TIME
     Route: 065
     Dates: start: 20180905, end: 20180905
  27. ZALTRAP [Suspect]
     Active Substance: ZIV-AFLIBERCEPT
     Dosage: 1X: ONE TIME
     Route: 041
     Dates: start: 20180523, end: 20180523
  28. ZALTRAP [Suspect]
     Active Substance: ZIV-AFLIBERCEPT
     Dosage: 1X: ONE TIME
     Route: 041
     Dates: start: 20190508, end: 20190508
  29. CALCIUM FOLINATE [Suspect]
     Active Substance: LEUCOVORIN CALCIUM
     Route: 065
     Dates: start: 20180620, end: 20180704
  30. CALCIUM FOLINATE [Suspect]
     Active Substance: LEUCOVORIN CALCIUM
     Dosage: 1X: ONE TIME
     Route: 065
     Dates: start: 20181212, end: 20181212
  31. CALCIUM FOLINATE [Suspect]
     Active Substance: LEUCOVORIN CALCIUM
     Dosage: 1X: ONE TIME
     Route: 065
     Dates: start: 20190123, end: 20190123
  32. IRINOTECAN [Suspect]
     Active Substance: IRINOTECAN
     Route: 065
     Dates: start: 20180620, end: 20180704
  33. IRINOTECAN [Suspect]
     Active Substance: IRINOTECAN
     Dosage: 1X: ONE TIME
     Route: 065
     Dates: start: 20190320, end: 20190320
  34. IRINOTECAN [Suspect]
     Active Substance: IRINOTECAN
     Dosage: 1X: ONE TIME
     Route: 065
     Dates: start: 20190403, end: 20190403
  35. IRINOTECAN [Suspect]
     Active Substance: IRINOTECAN
     Dosage: 1X: ONE TIME
     Route: 065
     Dates: start: 20190508, end: 20190508
  36. IRINOTECAN [Suspect]
     Active Substance: IRINOTECAN
     Dosage: 1X: ONE TIME
     Route: 065
     Dates: start: 20190619, end: 20190619
  37. FLUOROURACIL. [Suspect]
     Active Substance: FLUOROURACIL
     Dosage: 1X: ONE TIME
     Route: 041
     Dates: start: 20181010, end: 20181010
  38. FLUOROURACIL. [Suspect]
     Active Substance: FLUOROURACIL
     Dosage: 1X: ONE TIME
     Route: 041
     Dates: start: 20190403, end: 20190403
  39. ENTOMIN [Concomitant]
     Indication: HICCUPS
     Dates: start: 20180523, end: 20180530
  40. ZALTRAP [Suspect]
     Active Substance: ZIV-AFLIBERCEPT
     Dosage: 1X: ONE TIME
     Route: 041
     Dates: start: 20181107, end: 20181107
  41. CALCIUM FOLINATE [Suspect]
     Active Substance: LEUCOVORIN CALCIUM
     Dosage: 1X: ONE TIME
     Route: 065
     Dates: start: 20180905, end: 20180905
  42. IRINOTECAN [Suspect]
     Active Substance: IRINOTECAN
     Dosage: 1X: ONE TIME
     Route: 065
     Dates: start: 20181107, end: 20181107
  43. FLUOROURACIL. [Suspect]
     Active Substance: FLUOROURACIL
     Dosage: 1X: ONE TIME
     Route: 041
     Dates: start: 20190213, end: 20190213
  44. ZALTRAP [Suspect]
     Active Substance: ZIV-AFLIBERCEPT
     Route: 041
     Dates: start: 20180620, end: 20180704
  45. ZALTRAP [Suspect]
     Active Substance: ZIV-AFLIBERCEPT
     Dosage: 1X: ONE TIME
     Route: 041
     Dates: start: 20190403, end: 20190403
  46. ZALTRAP [Suspect]
     Active Substance: ZIV-AFLIBERCEPT
     Dosage: 1X: ONE TIME
     Route: 041
     Dates: start: 20190619, end: 20190619
  47. CALCIUM FOLINATE [Suspect]
     Active Substance: LEUCOVORIN CALCIUM
     Dosage: 1X: ONE TIME
     Route: 065
     Dates: start: 20190320, end: 20190320
  48. IRINOTECAN [Suspect]
     Active Substance: IRINOTECAN
     Dosage: 1X: ONE TIME
     Route: 065
     Dates: start: 20190123, end: 20190123
  49. FLUOROURACIL. [Suspect]
     Active Substance: FLUOROURACIL
     Route: 040
     Dates: start: 20180620, end: 20180704
  50. FLUOROURACIL. [Suspect]
     Active Substance: FLUOROURACIL
     Dosage: 1X: ONE TIME
     Route: 041
     Dates: start: 20180905, end: 20180905
  51. FLUOROURACIL. [Suspect]
     Active Substance: FLUOROURACIL
     Dosage: 1X: ONE TIME
     Route: 040
     Dates: start: 20181010, end: 20181010
  52. FLUOROURACIL. [Suspect]
     Active Substance: FLUOROURACIL
     Dosage: 1X: ONE TIME
     Route: 040
     Dates: start: 20190123, end: 20190123
  53. FLUOROURACIL. [Suspect]
     Active Substance: FLUOROURACIL
     Dosage: 1X: ONE TIME
     Route: 041
     Dates: start: 20190320, end: 20190320
  54. FLUOROURACIL. [Suspect]
     Active Substance: FLUOROURACIL
     Dosage: 1X: ONE TIME
     Route: 040
     Dates: start: 20190619, end: 20190619
  55. FLUOROURACIL. [Suspect]
     Active Substance: FLUOROURACIL
     Dosage: 1X: ONE TIME
     Route: 041
     Dates: start: 20190619, end: 20190619
  56. LOPEMIN [Concomitant]
     Indication: DIARRHOEA
     Dates: start: 20180523, end: 20180615
  57. CALCIUM FOLINATE [Suspect]
     Active Substance: LEUCOVORIN CALCIUM
     Dosage: 1X: ONE TIME
     Route: 065
     Dates: start: 20190619, end: 20190619
  58. IRINOTECAN [Suspect]
     Active Substance: IRINOTECAN
     Indication: RECTAL CANCER
     Route: 065
     Dates: start: 20180502, end: 20180523
  59. FLUOROURACIL. [Suspect]
     Active Substance: FLUOROURACIL
     Indication: RECTAL CANCER
     Route: 040
     Dates: start: 20180502, end: 20180523
  60. FLUOROURACIL. [Suspect]
     Active Substance: FLUOROURACIL
     Route: 041
     Dates: start: 20180620, end: 20180704
  61. FLUOROURACIL. [Suspect]
     Active Substance: FLUOROURACIL
     Dosage: 1X: ONE TIME
     Route: 040
     Dates: start: 20181117, end: 20181117
  62. FLUOROURACIL. [Suspect]
     Active Substance: FLUOROURACIL
     Dosage: 1X: ONE TIME
     Route: 041
     Dates: start: 20190123, end: 20190123
  63. FLUOROURACIL. [Suspect]
     Active Substance: FLUOROURACIL
     Dosage: 1X: ONE TIME
     Route: 040
     Dates: start: 20190508, end: 20190508

REACTIONS (2)
  - Neutrophil count decreased [Recovered/Resolved]
  - Urinary retention [Recovered/Resolved]

NARRATIVE: CASE EVENT DATE: 20180605
